FAERS Safety Report 6234156-5 (Version None)
Quarter: 2009Q2

REPORT INFORMATION
  Report Type: 
  Country: None (occurrence: None)
  Receive Date: 20090618
  Receipt Date: 20090615
  Transmission Date: 20091009
  Serious: No
  Sender: FDA-Public Use
  Company Number: US-BAYER-200923824NA

PATIENT
  Sex: Female

DRUGS (1)
  1. MIRENA [Suspect]
     Indication: UNEVALUABLE EVENT
     Route: 015
     Dates: start: 20060801, end: 20080401

REACTIONS (7)
  - DISCOMFORT [None]
  - PRESYNCOPE [None]
  - PROCEDURAL VOMITING [None]
  - PRURITUS GENITAL [None]
  - SELF ESTEEM DECREASED [None]
  - SEXUAL DYSFUNCTION [None]
  - VULVOVAGINAL MYCOTIC INFECTION [None]
